FAERS Safety Report 13395683 (Version 2)
Quarter: 2017Q3

REPORT INFORMATION
  Report Type: Spontaneous
  Country: FR (occurrence: FR)
  Receive Date: 20170403
  Receipt Date: 20170725
  Transmission Date: 20171127
  Serious: Yes (Death, Hospitalization)
  Sender: FDA-Public Use
  Company Number: FR-ROCHE-1913706

PATIENT
  Age: 44 Year
  Sex: Female

DRUGS (3)
  1. AVASTIN [Suspect]
     Active Substance: BEVACIZUMAB
     Indication: BREAST CANCER METASTATIC
     Route: 042
     Dates: end: 20170111
  2. CISPLATINE [Concomitant]
     Active Substance: CISPLATIN
  3. ALIMTA [Suspect]
     Active Substance: PEMETREXED DISODIUM
     Indication: BREAST CANCER METASTATIC
     Route: 042
     Dates: end: 20170111

REACTIONS (3)
  - Enterocolitis bacterial [Fatal]
  - Stenotrophomonas sepsis [Fatal]
  - Pancytopenia [Fatal]

NARRATIVE: CASE EVENT DATE: 20170123
